FAERS Safety Report 9111633 (Version 1)
Quarter: 2013Q1

REPORT INFORMATION
  Report Type: Spontaneous
  Country: US (occurrence: US)
  Receive Date: 20130219
  Receipt Date: 20130219
  Transmission Date: 20140127
  Serious: No
  Sender: FDA-Public Use
  Company Number: US-BRISTOL-MYERS SQUIBB COMPANY-16348526

PATIENT
  Age: 64 Year
  Sex: Female
  Weight: 59.86 kg

DRUGS (1)
  1. ORENCIA FOR INJ [Suspect]
     Indication: RHEUMATOID ARTHRITIS
     Dosage: LAST INJ ON 06JAN2012,7SEP12.
     Route: 058
     Dates: start: 20111209

REACTIONS (4)
  - Excoriation [Recovering/Resolving]
  - Pruritus [Unknown]
  - Macule [Unknown]
  - Herpes zoster [Recovering/Resolving]
